FAERS Safety Report 19778843 (Version 1)
Quarter: 2021Q3

REPORT INFORMATION
  Report Type: Spontaneous
  Country: CN (occurrence: CN)
  Receive Date: 20210902
  Receipt Date: 20210902
  Transmission Date: 20211014
  Serious: Yes (Other)
  Sender: FDA-Public Use
  Company Number: CN-PRA-000175

PATIENT
  Age: 66 Year

DRUGS (6)
  1. PREDNISOLONE ACETATE. [Suspect]
     Active Substance: PREDNISOLONE ACETATE
     Indication: SYMPATHETIC OPHTHALMIA
     Route: 065
  2. METHYLPREDNISOLONE. [Suspect]
     Active Substance: METHYLPREDNISOLONE
     Indication: SYMPATHETIC OPHTHALMIA
     Dosage: FOR 6 DAYS
     Route: 065
  3. METHYLPREDNISOLONE. [Suspect]
     Active Substance: METHYLPREDNISOLONE
     Indication: SYMPATHETIC OPHTHALMIA
     Dosage: (1 MG/KG/DAY)
     Route: 048
  4. METHYLPREDNISOLONE. [Suspect]
     Active Substance: METHYLPREDNISOLONE
     Indication: SYMPATHETIC OPHTHALMIA
     Route: 048
  5. METHYLPREDNISOLONE. [Suspect]
     Active Substance: METHYLPREDNISOLONE
     Indication: SYMPATHETIC OPHTHALMIA
     Route: 048
  6. PRANOPROFEN [Suspect]
     Active Substance: PRANOPROFEN
     Indication: SYMPATHETIC OPHTHALMIA
     Route: 065

REACTIONS (2)
  - Osteoporosis [Unknown]
  - Hyperglycaemia [Unknown]
